FAERS Safety Report 5442409-3 (Version None)
Quarter: 2007Q3

REPORT INFORMATION
  Report Type: 
  Country: None (occurrence: None)
  Receive Date: 20070904
  Receipt Date: 20070823
  Transmission Date: 20080115
  Serious: Yes (Other)
  Sender: FDA-Public Use
  Company Number: PFIZER INC-2007070932

PATIENT
  Sex: Male
  Weight: 106.6 kg

DRUGS (6)
  1. LYRICA [Suspect]
     Indication: DIABETIC NEUROPATHY
  2. GABAPENTIN [Suspect]
     Indication: DIABETIC NEUROPATHY
  3. INSULIN [Concomitant]
  4. MIDODRINE [Concomitant]
  5. ZOLOFT [Concomitant]
  6. ZOCOR [Concomitant]

REACTIONS (8)
  - AUTONOMIC NEUROPATHY [None]
  - BALANCE DISORDER [None]
  - DIZZINESS [None]
  - EYE HAEMORRHAGE [None]
  - INSOMNIA [None]
  - NEUROPATHY [None]
  - TEMPERATURE INTOLERANCE [None]
  - VISION BLURRED [None]
